FAERS Safety Report 25643006 (Version 2)
Quarter: 2025Q4

REPORT INFORMATION
  Report Type: Report from Study
  Country: JP (occurrence: JP)
  Receive Date: 20250805
  Receipt Date: 20251123
  Transmission Date: 20260118
  Serious: Yes (Hospitalization)
  Sender: ABBVIE
  Company Number: JP-TAKEDA-2025TJP007774

PATIENT
  Age: 64 Year
  Sex: Male

DRUGS (10)
  1. LEUPROLIDE ACETATE [Suspect]
     Active Substance: LEUPROLIDE ACETATE
     Indication: Bulbospinal muscular atrophy congenital
     Dosage: 11.25 MILLIGRAM, Q3MONTHS
     Route: 058
     Dates: start: 20200725
  2. EZETIMIBE [Concomitant]
     Active Substance: EZETIMIBE
     Indication: Diabetes mellitus
     Dosage: 10 MILLIGRAM
     Route: 065
     Dates: start: 20220827
  3. ZOLPIDEM TARTRATE [Concomitant]
     Active Substance: ZOLPIDEM TARTRATE
     Indication: Insomnia
     Dosage: 10 MILLIGRAM
     Route: 065
     Dates: start: 20220827
  4. EPERISONE HYDROCHLORIDE [Concomitant]
     Active Substance: EPERISONE HYDROCHLORIDE
     Indication: Spinal osteoarthritis
     Dosage: 100 MILLIGRAM
     Dates: start: 20220827
  5. NITROFURANTOIN [Concomitant]
     Active Substance: NITROFURANTOIN
     Indication: Gastritis
     Dosage: 1.0 GRAM
     Dates: start: 20220827
  6. METGLUCO [Concomitant]
     Active Substance: METFORMIN HYDROCHLORIDE
     Indication: Diabetes mellitus
     Dosage: 1000 MILLIGRAM
     Dates: start: 20220827
  7. FAMOTIDINE [Concomitant]
     Active Substance: FAMOTIDINE
     Indication: Gastritis
     Dosage: 20 MILLIGRAM
     Dates: start: 20220827
  8. AMLODIPINE BESYLATE\TELMISARTAN [Concomitant]
     Active Substance: AMLODIPINE BESYLATE\TELMISARTAN
     Indication: Hypertension
     Dosage: 1 DOSAGE FORM?TABLET, FILM COATED
     Dates: start: 20220827
  9. BISOPROLOL FUMARATE [Concomitant]
     Active Substance: BISOPROLOL FUMARATE
     Indication: Hypertension
     Dosage: 2.5 MILLIGRAM
     Route: 065
     Dates: start: 20220827
  10. SITAGLIPTIN [Concomitant]
     Active Substance: SITAGLIPTIN
     Indication: Diabetes mellitus
     Dosage: 50 MILLIGRAM
     Dates: start: 20220827, end: 20231026

REACTIONS (1)
  - Bulbospinal muscular atrophy congenital [Recovering/Resolving]

NARRATIVE: CASE EVENT DATE: 20250306
